FAERS Safety Report 6335231-7 (Version None)
Quarter: 2009Q3

REPORT INFORMATION
  Report Type: 
  Country: None (occurrence: None)
  Receive Date: 20090828
  Receipt Date: 20090828
  Transmission Date: 20100115
  Serious: Yes (Other)
  Sender: FDA-Public Use
  Company Number: None

PATIENT
  Age: 63 Year
  Sex: Female
  Weight: 81.6475 kg

DRUGS (1)
  1. PREMARIN [Suspect]
     Dosage: 1 GRAM NITE TIME
     Dates: start: 20090725

REACTIONS (4)
  - ERYTHEMA [None]
  - FEELING HOT [None]
  - PARAESTHESIA [None]
  - RASH [None]
